FAERS Safety Report 4895401-1 (Version None)
Quarter: 2006Q1

REPORT INFORMATION
  Report Type: 
  Country: None (occurrence: None)
  Receive Date: 20060130
  Receipt Date: 20050314
  Transmission Date: 20060701
  Serious: No
  Sender: FDA-Public Use
  Company Number: US-GLAXOSMITHKLINE-A0549630A

PATIENT
  Sex: Female

DRUGS (2)
  1. COMBIVIR [Suspect]
     Dosage: 1CAP TWICE PER DAY
     Route: 048
     Dates: start: 20050311, end: 20050312
  2. BIRTH CONTROL PILLS [Concomitant]

REACTIONS (1)
  - DIARRHOEA [None]
